FAERS Safety Report 8107178-7 (Version None)
Quarter: 2012Q1

REPORT INFORMATION
  Report Type: 
  Country: None (occurrence: None)
  Receive Date: 20120202
  Receipt Date: 20120123
  Transmission Date: 20120608
  Serious: Yes (Hospitalization)
  Sender: FDA-Public Use
  Company Number: JP-PFIZER INC-2012013491

PATIENT
  Age: 30 Year
  Sex: Male

DRUGS (1)
  1. METHYLPREDNISOLONE [Suspect]
     Dosage: 1000 MG, UNK

REACTIONS (1)
  - THYROTOXIC PERIODIC PARALYSIS [None]
